FAERS Safety Report 12079466 (Version 1)
Quarter: 2016Q1

REPORT INFORMATION
  Report Type: Spontaneous
  Country: US (occurrence: None)
  Receive Date: 20160212
  Receipt Date: 20160212
  Transmission Date: 20160526
  Serious: No
  Sender: FDA-Public Use
  Company Number: None

PATIENT
  Age: 76 Year
  Sex: Female
  Weight: 71.67 kg

DRUGS (1)
  1. AMLOD/BENAZEPRIL 5-10MG (GENERIC FOR LOTREL 5-10 MG CAP [Suspect]
     Active Substance: AMLODIPINE BESYLATE\BENAZEPRIL HYDROCHLORIDE
     Indication: HYPERTENSION
     Route: 048

REACTIONS (5)
  - Gait disturbance [None]
  - Pain in extremity [None]
  - Limb discomfort [None]
  - Chest pain [None]
  - Pain [None]
